FAERS Safety Report 13452502 (Version 1)
Quarter: 2017Q2

REPORT INFORMATION
  Report Type: Spontaneous
  Country: US (occurrence: US)
  Receive Date: 20170418
  Receipt Date: 20170418
  Transmission Date: 20170830
  Serious: Yes (Hospitalization, Other)
  Sender: FDA-Public Use
  Company Number: US-TEVA-685807USA

PATIENT
  Age: 69 Year
  Sex: Male
  Weight: 117.13 kg

DRUGS (18)
  1. CARVEDILOL. [Concomitant]
     Active Substance: CARVEDILOL
     Indication: CARDIAC FAILURE CONGESTIVE
     Dosage: 25 MILLIGRAM DAILY;
     Route: 048
     Dates: start: 20141015, end: 20160614
  2. GABAPENTIN. [Concomitant]
     Active Substance: GABAPENTIN
     Dosage: 900 MILLIGRAM DAILY;
     Route: 048
     Dates: start: 20160327
  3. AMIODARONE [Concomitant]
     Active Substance: AMIODARONE
     Indication: ATRIAL FIBRILLATION
     Dosage: 200 MILLIGRAM DAILY;
     Route: 048
     Dates: start: 201605
  4. LASIX [Concomitant]
     Active Substance: FUROSEMIDE
     Indication: CARDIAC FAILURE CONGESTIVE
     Dosage: 20 MILLIGRAM DAILY;
     Route: 048
     Dates: start: 20141015
  5. ATORVASTATIN [Concomitant]
     Active Substance: ATORVASTATIN
     Indication: HYPERLIPIDAEMIA
     Dosage: 40 MILLIGRAM DAILY;
     Route: 048
     Dates: start: 201605
  6. WARFARIN [Suspect]
     Active Substance: WARFARIN
     Indication: DEEP VEIN THROMBOSIS
     Dosage: 1 MILLIGRAM DAILY;
     Route: 048
     Dates: start: 20160614
  7. TRAMADOL. [Concomitant]
     Active Substance: TRAMADOL
     Indication: LUMBAR SPINAL STENOSIS
     Dosage: 200 MILLIGRAM DAILY;
     Route: 048
     Dates: start: 1996, end: 20160614
  8. WARFARIN [Suspect]
     Active Substance: WARFARIN
     Indication: ATRIAL FIBRILLATION
     Dosage: 2 MILLIGRAM DAILY;
     Route: 048
     Dates: start: 2007, end: 20160614
  9. SERTRALINE HCL [Concomitant]
     Active Substance: SERTRALINE HYDROCHLORIDE
     Indication: DEPRESSION
     Dosage: 50 MILLIGRAM DAILY;
     Route: 048
     Dates: start: 1992, end: 20160614
  10. FENOFIBRATE. [Concomitant]
     Active Substance: FENOFIBRATE
     Indication: HYPERLIPIDAEMIA
     Dosage: 145 MILLIGRAM DAILY;
     Route: 048
     Dates: start: 201605
  11. TRAMADOL. [Concomitant]
     Active Substance: TRAMADOL
     Dosage: 300 MILLIGRAM DAILY; ONCE EVERY 4 HOURS
     Route: 048
     Dates: start: 20160614
  12. GABAPENTIN. [Concomitant]
     Active Substance: GABAPENTIN
     Indication: PHLEBITIS
     Dosage: 600 MILLIGRAM DAILY;
     Route: 048
     Dates: start: 20050209, end: 20160327
  13. PF-04950615; PLACEBO (CODE NOT BROKEN) [Concomitant]
     Active Substance: BOCOCIZUMAB
     Indication: CARDIOVASCULAR DISORDER
     Dosage: ONCE EVERY 2 WEEKS
     Route: 058
     Dates: start: 20150616, end: 20160603
  14. CARVEDILOL. [Concomitant]
     Active Substance: CARVEDILOL
     Dosage: 6.25 MILLIGRAM DAILY;
     Route: 048
     Dates: start: 20160614
  15. LOSARTAN. [Concomitant]
     Active Substance: LOSARTAN
     Indication: HYPERTENSION
     Dosage: 50 MILLIGRAM DAILY;
     Route: 048
     Dates: start: 20141015
  16. ASPIRIN. [Concomitant]
     Active Substance: ASPIRIN
     Indication: CARDIOVASCULAR EVENT PROPHYLAXIS
     Dosage: 81 MILLIGRAM DAILY;
     Route: 048
     Dates: start: 20141015
  17. NITROGLYCERIN. [Concomitant]
     Active Substance: NITROGLYCERIN
     Indication: CHEST PAIN
     Dosage: AS NEEDED
     Route: 060
     Dates: start: 2015
  18. SIMVASTATIN. [Concomitant]
     Active Substance: SIMVASTATIN
     Indication: HYPERLIPIDAEMIA
     Dosage: 40 MILLIGRAM DAILY;
     Route: 048
     Dates: start: 2012, end: 201605

REACTIONS (2)
  - Diverticulitis [Unknown]
  - Gastrointestinal haemorrhage [Recovered/Resolved]

NARRATIVE: CASE EVENT DATE: 20160614
